FAERS Safety Report 6003136-7 (Version None)
Quarter: 2008Q4

REPORT INFORMATION
  Report Type: 
  Country: None (occurrence: None)
  Receive Date: 20081212
  Receipt Date: 20081212
  Transmission Date: 20090506
  Serious: No
  Sender: FDA-Public Use
  Company Number: None

PATIENT
  Sex: Female
  Weight: 110.45 kg

DRUGS (26)
  1. ATORVASTATIN CALCIUM [Suspect]
     Dosage: 40 MG QD ORAL
     Route: 048
     Dates: start: 20081211, end: 20081211
  2. ACETYLSALICYLIC ACID [Concomitant]
  3. ADVAIR DISKUS 250/50 (FLUTICASONE PROPIONATE/SALMETEROL 250/50) [Concomitant]
  4. ALBUTEROL INHALER HFA [Concomitant]
  5. ALBUTEROL MDI (ALBUTEROL INHALER) [Concomitant]
  6. ALBUTEROL [Concomitant]
  7. AMIODARONE HCL [Concomitant]
  8. ATIVAN [Concomitant]
  9. CANDESARTAN [Concomitant]
  10. FOLATE (FOLIC ACID) [Concomitant]
  11. GLIPIZIDE [Concomitant]
  12. KLOR-CON (KCL SLOW RELEASE) [Concomitant]
  13. LABETALOL HCL [Concomitant]
  14. LISINOPRIL [Concomitant]
  15. NIFEREX [Concomitant]
  16. NITROGLYCERIN [Concomitant]
  17. NORVASC [Concomitant]
  18. NITROGLYCERIN [Concomitant]
  19. OXYCODONE HCL [Concomitant]
  20. OXYCONTIN (OXYCODONE CONTRLOLLED RELEASE) [Concomitant]
  21. PERCOCET [Concomitant]
  22. SENNA (SENNOSIDES) [Concomitant]
  23. SERTRALINE [Concomitant]
  24. THERAPEUTIC MULTIVITAMINS [Concomitant]
  25. TORSEMIDE [Concomitant]
  26. WARFARIN SODIUM [Concomitant]

REACTIONS (1)
  - MYALGIA [None]
